FAERS Safety Report 17576801 (Version 1)
Quarter: 2020Q1

REPORT INFORMATION
  Report Type: Other
  Country: US (occurrence: US)
  Receive Date: 20200324
  Receipt Date: 20200324
  Transmission Date: 20200409
  Serious: No
  Sender: FDA-Public Use
  Company Number: US-ACORDA-ACO_162972_2019

PATIENT
  Sex: Female

DRUGS (2)
  1. INBRIJA [Suspect]
     Active Substance: LEVODOPA
     Indication: ON AND OFF PHENOMENON
  2. INBRIJA [Suspect]
     Active Substance: LEVODOPA
     Indication: PARKINSON^S DISEASE
     Dosage: 84 MILLIGRAM AS NEEDED (MAX 5 DOSES DAILY)
     Dates: start: 20191121, end: 20191220

REACTIONS (5)
  - Incorrect route of product administration [Unknown]
  - Dysphagia [Not Recovered/Not Resolved]
  - Device difficult to use [Unknown]
  - Motor dysfunction [Unknown]
  - Device use issue [Unknown]
